FAERS Safety Report 5484578-5 (Version None)
Quarter: 2007Q4

REPORT INFORMATION
  Report Type: 
  Country: None (occurrence: None)
  Receive Date: 20071012
  Receipt Date: 20071001
  Transmission Date: 20080405
  Serious: Yes (Hospitalization, Other)
  Sender: FDA-Public Use
  Company Number: US-PFIZER INC-2007051309

PATIENT
  Sex: Male

DRUGS (1)
  1. BEXTRA [Suspect]
     Indication: PAIN IN EXTREMITY
     Route: 048
     Dates: start: 20020313, end: 20020327

REACTIONS (1)
  - MYOCARDIAL INFARCTION [None]
